FAERS Safety Report 8485472-8 (Version None)
Quarter: 2012Q3

REPORT INFORMATION
  Report Type: 
  Country: None (occurrence: None)
  Receive Date: 20120703
  Receipt Date: 20120628
  Transmission Date: 20120928
  Serious: Yes (Hospitalization, Other)
  Sender: FDA-Public Use
  Company Number: US-ROCHE-784492

PATIENT
  Sex: Male
  Weight: 81.72 kg

DRUGS (4)
  1. ACCUTANE [Suspect]
     Route: 065
     Dates: start: 19900101, end: 19910101
  2. ACCUTANE [Suspect]
     Indication: ACNE
     Route: 065
     Dates: start: 19840101, end: 19850101
  3. ACCUTANE [Suspect]
     Route: 065
     Dates: start: 19851001, end: 19860501
  4. ACCUTANE [Suspect]
     Route: 065
     Dates: start: 19910201, end: 19910701

REACTIONS (6)
  - ANAEMIA [None]
  - FISTULA [None]
  - INTESTINAL OBSTRUCTION [None]
  - CROHN'S DISEASE [None]
  - INFLAMMATORY BOWEL DISEASE [None]
  - STRESS [None]
